FAERS Safety Report 4611762-2 (Version None)
Quarter: 2005Q1

REPORT INFORMATION
  Report Type: 
  Country: None (occurrence: None)
  Receive Date: 20050308
  Receipt Date: 20041207
  Transmission Date: 20050727
  Serious: Yes (Other)
  Sender: FDA-Public Use
  Company Number: 2004UW24986

PATIENT
  Age: 72 Year
  Sex: Female
  Weight: 63.049 kg

DRUGS (8)
  1. CRESTOR [Suspect]
     Indication: BLOOD CHOLESTEROL INCREASED
     Dosage: 5 MG PO
     Route: 048
  2. LOTREL [Concomitant]
  3. ZOLOFT [Concomitant]
  4. TYLENOL (CAPLET) [Concomitant]
  5. ASPIRIN [Concomitant]
  6. TRAZODONE [Concomitant]
  7. XANAX [Concomitant]
  8. ACTONEL [Concomitant]

REACTIONS (3)
  - DIZZINESS [None]
  - EYE MOVEMENT DISORDER [None]
  - PARAESTHESIA [None]
